FAERS Safety Report 13937003 (Version 8)
Quarter: 2018Q1

REPORT INFORMATION
  Report Type: Spontaneous
  Country: US (occurrence: US)
  Receive Date: 20170905
  Receipt Date: 20180125
  Transmission Date: 20180508
  Serious: No
  Sender: FDA-Public Use
  Company Number: US-PFIZER INC-2017378726

PATIENT
  Age: 74 Year
  Sex: Male
  Weight: 87 kg

DRUGS (6)
  1. SUTENT [Suspect]
     Active Substance: SUNITINIB MALATE
     Indication: RENAL CANCER STAGE IV
     Dosage: 50 MG, CYCLIC (28 DAYS ON/14 DAYS OFF)
     Dates: start: 20170825
  2. IBUPROFEN. [Concomitant]
     Active Substance: IBUPROFEN
     Dosage: UNK
  3. MAGNESIUM [Concomitant]
     Active Substance: MAGNESIUM
     Indication: CONSTIPATION
     Dosage: UNK
  4. FLOMAX [Concomitant]
     Active Substance: TAMSULOSIN HYDROCHLORIDE
     Dosage: UNK
  5. ASPIRIN. [Concomitant]
     Active Substance: ASPIRIN
     Dosage: UNK
  6. FENOFIBRATE. [Concomitant]
     Active Substance: FENOFIBRATE
     Dosage: UNK

REACTIONS (15)
  - Chills [Unknown]
  - Nausea [Not Recovered/Not Resolved]
  - Hunger [Not Recovered/Not Resolved]
  - Ageusia [Not Recovered/Not Resolved]
  - Vomiting [Recovering/Resolving]
  - Malaise [Unknown]
  - Viral infection [Unknown]
  - Dyspepsia [Unknown]
  - Yellow skin [Recovered/Resolved]
  - Abdominal pain upper [Unknown]
  - Blood glucose increased [Unknown]
  - Hypertension [Unknown]
  - Abdominal distension [Not Recovered/Not Resolved]
  - Muscle atrophy [Unknown]
  - Fatigue [Unknown]

NARRATIVE: CASE EVENT DATE: 2017
